FAERS Safety Report 7494389-7 (Version None)
Quarter: 2011Q2

REPORT INFORMATION
  Report Type: 
  Country: None (occurrence: None)
  Receive Date: 20110520
  Receipt Date: 20110513
  Transmission Date: 20111010
  Serious: Yes (Hospitalization, Other)
  Sender: FDA-Public Use
  Company Number: FR-PFIZER INC-2011108074

PATIENT
  Age: 70 Year
  Sex: Female

DRUGS (14)
  1. LASIX [Concomitant]
     Dosage: UNK
     Dates: start: 20110218
  2. ZOLOFT [Concomitant]
     Dosage: UNK
  3. ATORVASTATIN CALCIUM [Concomitant]
     Dosage: UNK
  4. ALBUMIN HUMAN [Concomitant]
     Dosage: UNK
     Dates: start: 20110218
  5. ASPEGIC 325 [Concomitant]
     Dosage: UNK
  6. IRBESARTAN [Concomitant]
     Dosage: UNK
  7. DOPAMINE [Concomitant]
     Dosage: UNK
     Dates: start: 20110218
  8. CORDARONE [Suspect]
     Indication: TACHYARRHYTHMIA
  9. AMOXICILLIN AND CLAVULANATE POTASSIUM [Suspect]
     Dosage: 3 G, 1X/DAY
     Route: 048
     Dates: start: 20110216, end: 20110224
  10. NOVOMIX [Concomitant]
     Dosage: UNK
  11. CORDIPATCH [Concomitant]
     Dosage: UNK
  12. CORDARONE [Suspect]
     Indication: EXTRASYSTOLES
     Dosage: 400 MG, 1X/DAY
     Route: 048
     Dates: start: 20110222, end: 20110228
  13. FUROSEMIDE [Concomitant]
     Dosage: UNK
  14. ATENOLOL [Concomitant]
     Dosage: UNK

REACTIONS (1)
  - LEUKOCYTOCLASTIC VASCULITIS [None]
